FAERS Safety Report 6306503-7 (Version None)
Quarter: 2009Q3

REPORT INFORMATION
  Report Type: 
  Country: None (occurrence: None)
  Receive Date: 20090812
  Receipt Date: 20090811
  Transmission Date: 20100115
  Serious: Yes (Other)
  Sender: FDA-Public Use
  Company Number: A0801546A

PATIENT
  Age: 49 Year
  Sex: Male

DRUGS (6)
  1. ALLI [Suspect]
     Indication: WEIGHT LOSS DIET
     Route: 048
     Dates: start: 20090809
  2. AVODART [Concomitant]
     Indication: PROSTATIC DISORDER
     Route: 048
  3. FLOMAX [Concomitant]
     Indication: PROSTATIC DISORDER
     Route: 048
  4. LYRICA [Concomitant]
     Route: 048
  5. METHADONE [Concomitant]
     Indication: PAIN
     Route: 048
  6. AMITRIPTYLINE [Concomitant]
     Indication: SLEEP DISORDER
     Route: 048

REACTIONS (2)
  - HAEMATOCHEZIA [None]
  - RECTAL HAEMORRHAGE [None]
